FAERS Safety Report 21305280 (Version 2)
Quarter: 2023Q2

REPORT INFORMATION
  Report Type: Spontaneous
  Country: US (occurrence: US)
  Receive Date: 20220907
  Receipt Date: 20230511
  Transmission Date: 20230722
  Serious: Yes (Other)
  Sender: FDA-Public Use
  Company Number: US-PRINSTON PHARMACEUTICAL INC.-2022PRN00316

PATIENT
  Age: 71 Year
  Sex: Female

DRUGS (5)
  1. SACUBITRIL\VALSARTAN [Suspect]
     Active Substance: SACUBITRIL\VALSARTAN
     Indication: Cardiac failure acute
     Dosage: 24/26 MG
     Route: 065
     Dates: start: 20211012, end: 20211013
  2. METOROLOL SUCCINATE [Concomitant]
     Indication: Cardiac failure acute
     Dosage: 25 MG
     Route: 065
     Dates: start: 20211012
  3. SPIRONOLACTONE [Concomitant]
     Active Substance: SPIRONOLACTONE
     Indication: Cardiac failure acute
     Dosage: 12.5 MG
     Route: 065
     Dates: start: 20211010
  4. EMPAGLIFLOZIN [Concomitant]
     Active Substance: EMPAGLIFLOZIN
     Indication: Cardiac failure acute
     Dosage: 10 MG
     Route: 065
     Dates: start: 20211009, end: 20211013
  5. EMPAGLIFLOZIN [Concomitant]
     Active Substance: EMPAGLIFLOZIN
     Dosage: 10 MG
     Route: 065
     Dates: start: 20211015

REACTIONS (1)
  - Hyponatraemia [Recovered/Resolved]
